FAERS Safety Report 8605209-9 (Version None)
Quarter: 2012Q3

REPORT INFORMATION
  Report Type: 
  Country: None (occurrence: None)
  Receive Date: 20120820
  Receipt Date: 20120810
  Transmission Date: 20120928
  Serious: Yes (Other)
  Sender: FDA-Public Use
  Company Number: CA-ELI_LILLY_AND_COMPANY-CA201201000777

PATIENT
  Age: 72 Year
  Sex: Female

DRUGS (18)
  1. CELEBREX [Concomitant]
  2. IRON [Concomitant]
  3. FORTEO [Suspect]
     Indication: OSTEOPOROSIS
     Dosage: 20 UG, QD
     Route: 058
     Dates: start: 20100703, end: 20110722
  4. FORTEO [Suspect]
     Dosage: 20 UG, QD
     Route: 058
     Dates: start: 20110730
  5. NEXIUM [Concomitant]
  6. BACLOFEN [Concomitant]
     Dosage: UNK, UNKNOWN
     Route: 065
  7. PROMETRIUM [Concomitant]
  8. MULTI-VITAMIN [Concomitant]
  9. RASILEZ [Concomitant]
  10. FORTEO [Suspect]
     Dosage: 20 UG, QOD
     Route: 058
     Dates: start: 20111101
  11. PREMARIN [Concomitant]
  12. ALTACE [Concomitant]
  13. SYNTHROID [Concomitant]
  14. NORVASC [Concomitant]
  15. LIPITOR [Concomitant]
  16. VITAMIN D [Concomitant]
     Dosage: 1000 IU, UNK
  17. BISOPROLOL FUMARATE [Concomitant]
     Dosage: UNK, UNKNOWN
     Route: 065
  18. INDAPAMIDE [Concomitant]
     Dosage: UNK, UNKNOWN
     Route: 065

REACTIONS (9)
  - FALL [None]
  - FATIGUE [None]
  - JOINT STIFFNESS [None]
  - JOINT SWELLING [None]
  - FEMUR FRACTURE [None]
  - MUSCULAR WEAKNESS [None]
  - UPPER LIMB FRACTURE [None]
  - DRUG PRESCRIBING ERROR [None]
  - DIZZINESS [None]
